FAERS Safety Report 23384424 (Version 7)
Quarter: 2024Q3

REPORT INFORMATION
  Report Type: Report from Study
  Country: US (occurrence: US)
  Receive Date: 20240109
  Receipt Date: 20240805
  Transmission Date: 20241017
  Serious: Yes (Death, Other)
  Sender: TAIHO ONCOLOGY INC
  Company Number: US-TAIHOP-2024-000117

PATIENT
  Age: 72 Year
  Sex: Male

DRUGS (3)
  1. LONSURF [Suspect]
     Active Substance: TIPIRACIL HYDROCHLORIDE\TRIFLURIDINE
     Indication: Rectal cancer metastatic
     Dosage: CYCLE UNKNOWN, FORM STRENGTH: 15 AND 20 MG.
     Route: 048
     Dates: start: 202310
  2. LONSURF [Suspect]
     Active Substance: TIPIRACIL HYDROCHLORIDE\TRIFLURIDINE
     Dosage: CYCLE UNKNOWN.
     Route: 048
     Dates: end: 20240708
  3. AVASTIN [Suspect]
     Active Substance: BEVACIZUMAB
     Indication: Product used for unknown indication
     Route: 050
     Dates: end: 20240403

REACTIONS (11)
  - Disease progression [Fatal]
  - Neutropenia [Unknown]
  - Narcolepsy [Unknown]
  - Anaemia [Unknown]
  - Platelet count decreased [Unknown]
  - Decreased appetite [Unknown]
  - Lethargy [Unknown]
  - Weight decreased [Unknown]
  - Fatigue [Not Recovered/Not Resolved]
  - Inappropriate schedule of product administration [Unknown]
  - Gastroenteritis viral [Unknown]

NARRATIVE: CASE EVENT DATE: 20240205
